FAERS Safety Report 14938378 (Version 2)
Quarter: 2018Q2

REPORT INFORMATION
  Report Type: Report from Study
  Country: IE (occurrence: IE)
  Receive Date: 20180525
  Receipt Date: 20180531
  Transmission Date: 20180711
  Serious: Yes (Hospitalization)
  Sender: FDA-Public Use
  Company Number: IE-JNJFOC-20180531245

PATIENT
  Sex: Male

DRUGS (10)
  1. AMITRIPTYLINE [Concomitant]
     Active Substance: AMITRIPTYLINE
     Route: 050
  2. ATORVASTATIN [Concomitant]
     Active Substance: ATORVASTATIN
     Route: 050
  3. STELARA [Suspect]
     Active Substance: USTEKINUMAB
     Indication: CROHN^S DISEASE
     Route: 058
     Dates: start: 20180315
  4. PURINETHOL [Concomitant]
     Active Substance: MERCAPTOPURINE
     Route: 050
  5. PREGABALIN. [Concomitant]
     Active Substance: PREGABALIN
     Route: 050
  6. NEBIVOLOL. [Concomitant]
     Active Substance: NEBIVOLOL
     Route: 050
  7. RIVAROXABAN [Concomitant]
     Active Substance: RIVAROXABAN
     Route: 050
  8. VENLAFAXINE [Concomitant]
     Active Substance: VENLAFAXINE HYDROCHLORIDE
     Route: 050
  9. COLECALCIFEROL [Concomitant]
     Active Substance: CHOLECALCIFEROL
     Route: 050
  10. LANSOPRAZOL [Concomitant]
     Active Substance: LANSOPRAZOLE
     Route: 050

REACTIONS (2)
  - Pallor [Not Recovered/Not Resolved]
  - Migraine [Not Recovered/Not Resolved]

NARRATIVE: CASE EVENT DATE: 2018
